FAERS Safety Report 10161099 (Version 1)
Quarter: 2014Q2

REPORT INFORMATION
  Report Type: Spontaneous
  Country: US (occurrence: US)
  Receive Date: 20140508
  Receipt Date: 20140508
  Transmission Date: 20141212
  Serious: No
  Sender: FDA-Public Use
  Company Number: US-PFIZER INC-2014121939

PATIENT
  Sex: 0

DRUGS (1)
  1. ADVIL COLD AND SINUS [Suspect]
     Indication: HYPERSENSITIVITY
     Dosage: UNK

REACTIONS (4)
  - Off label use [Unknown]
  - Choking sensation [Unknown]
  - Foreign body [Unknown]
  - Product size issue [Unknown]
